FAERS Safety Report 25444783 (Version 1)
Quarter: 2025Q2

REPORT INFORMATION
  Report Type: Spontaneous
  Country: FR (occurrence: FR)
  Receive Date: 20250617
  Receipt Date: 20250617
  Transmission Date: 20250717
  Serious: Yes (Other)
  Sender: AUROBINDO
  Company Number: FR-JNJFOC-20250509400

PATIENT
  Age: 71 Year
  Sex: Female
  Weight: 70 kg

DRUGS (4)
  1. CARBOPLATIN [Suspect]
     Active Substance: CARBOPLATIN
     Indication: Non-small cell lung cancer metastatic
     Route: 065
     Dates: start: 20250303
  2. PEMETREXED [Suspect]
     Active Substance: PEMETREXED
     Indication: Non-small cell lung cancer metastatic
     Route: 065
     Dates: start: 20250303
  3. RYBREVANT [Suspect]
     Active Substance: AMIVANTAMAB-VMJW
     Indication: Non-small cell lung cancer metastatic
     Route: 065
     Dates: start: 20250303
  4. OSIMERTINIB [Concomitant]
     Active Substance: OSIMERTINIB
     Indication: Product used for unknown indication
     Route: 065

REACTIONS (9)
  - Deep vein thrombosis [Unknown]
  - Haematotoxicity [Unknown]
  - Renal failure [Unknown]
  - Thrombocytopenia [Unknown]
  - Nausea [Not Recovered/Not Resolved]
  - Dermatitis acneiform [Recovering/Resolving]
  - Rash [Unknown]
  - Oedema peripheral [Unknown]
  - Superficial vein thrombosis [Unknown]

NARRATIVE: CASE EVENT DATE: 20250324
